FAERS Safety Report 4785996-0 (Version None)
Quarter: 2005Q3

REPORT INFORMATION
  Report Type: 
  Country: None (occurrence: None)
  Receive Date: 20050930
  Receipt Date: 20050930
  Transmission Date: 20060218
  Serious: Yes (Hospitalization)
  Sender: FDA-Public Use
  Company Number: None

PATIENT
  Sex: Female
  Weight: 76.3 kg

DRUGS (2)
  1. ALEVE [Suspect]
     Indication: ARTHRITIS
     Dosage: 220 MG ONCE PO
     Route: 048
     Dates: start: 20050303, end: 20050303
  2. ALEVE [Suspect]
     Indication: PAIN
     Dosage: 220 MG ONCE PO
     Route: 048
     Dates: start: 20050303, end: 20050303

REACTIONS (9)
  - AMNESIA [None]
  - DIZZINESS [None]
  - DRUG HYPERSENSITIVITY [None]
  - DYSPNOEA [None]
  - FALL [None]
  - HYPOTENSION [None]
  - LOSS OF CONSCIOUSNESS [None]
  - PRURITUS [None]
  - WHEEZING [None]
